FAERS Safety Report 4599499-X (Version None)
Quarter: 2005Q1

REPORT INFORMATION
  Report Type: 
  Country: None (occurrence: None)
  Receive Date: 20050307
  Receipt Date: 20041130
  Transmission Date: 20050727
  Serious: Yes (Other)
  Sender: FDA-Public Use
  Company Number: PHEH2004US12858

PATIENT
  Age: 55 Year
  Sex: Female
  Weight: 197 kg

DRUGS (4)
  1. LAMISIL [Suspect]
     Dosage: 250 MG, QD
     Route: 048
     Dates: start: 20041029, end: 20041127
  2. MOTRIN [Concomitant]
     Dosage: 800 MG, TID
     Route: 048
  3. Q-VEL MUSCLE RELAXANT PAIN RELIEVERS (NCH) [Concomitant]
     Dosage: 260 MG, QD
     Route: 048
  4. METFORMIN [Concomitant]
     Dosage: 500 MG, BID
     Route: 048

REACTIONS (3)
  - PRURITUS [None]
  - RASH ERYTHEMATOUS [None]
  - SWOLLEN TONGUE [None]
